FAERS Safety Report 4344363-4 (Version None)
Quarter: 2004Q2

REPORT INFORMATION
  Report Type: 
  Country: None (occurrence: None)
  Receive Date: 20040419
  Receipt Date: 20040402
  Transmission Date: 20050107
  Serious: Yes (Hospitalization)
  Sender: FDA-Public Use
  Company Number: USA-2004-0014532

PATIENT
  Age: 45 Year
  Sex: Female
  Weight: 56.5 kg

DRUGS (8)
  1. MS CONTIN [Suspect]
     Dosage: 45 MG, TID, ORAL
     Route: 048
  2. ROXICODONE [Concomitant]
  3. ATIVAN [Concomitant]
  4. FENTANYL [Concomitant]
  5. PREMARIN [Concomitant]
  6. PHENERGAN [Concomitant]
  7. ESTRADERM [Concomitant]
  8. NICOTINE [Concomitant]

REACTIONS (14)
  - ABDOMINAL PAIN [None]
  - DIARRHOEA [None]
  - DRUG ABUSER [None]
  - DYSURIA [None]
  - GENERAL NUTRITION DISORDER [None]
  - HEADACHE [None]
  - MALAISE [None]
  - MARKEDLY REDUCED DIETARY INTAKE [None]
  - NAUSEA [None]
  - PAIN [None]
  - PAIN IN JAW [None]
  - PANCREATITIS CHRONIC [None]
  - PYREXIA [None]
  - VOMITING [None]
